FAERS Safety Report 13537161 (Version 2)
Quarter: 2017Q2

REPORT INFORMATION
  Report Type: Report from Study
  Country: US (occurrence: US)
  Receive Date: 20170511
  Receipt Date: 20170612
  Transmission Date: 20170830
  Serious: Yes (Hospitalization, Other)
  Sender: FDA-Public Use
  Company Number: US-REGENERON PHARMACEUTICALS, INC.-2017-15453

PATIENT

DRUGS (3)
  1. EYLEA [Suspect]
     Active Substance: AFLIBERCEPT
     Dosage: BOTH EYES, INITIALLY MONTHLY, LAST DOSE
     Route: 031
     Dates: start: 201704
  2. EYLEA [Suspect]
     Active Substance: AFLIBERCEPT
     Indication: DIABETIC RETINAL OEDEMA
     Dosage: BOTH EYES, INITIALLY MONTHLY
     Route: 031
     Dates: start: 201505, end: 201608
  3. EYLEA [Suspect]
     Active Substance: AFLIBERCEPT
     Dosage: BOTH EYES, INITIALLY MONTHLY
     Route: 031
     Dates: start: 201702, end: 201702

REACTIONS (7)
  - Diverticulitis [Unknown]
  - Vitrectomy [Unknown]
  - Retinal detachment [Unknown]
  - Diverticular perforation [Unknown]
  - Drug dose omission [Unknown]
  - Hospitalisation [Unknown]
  - Cataract [Unknown]

NARRATIVE: CASE EVENT DATE: 201608
